FAERS Safety Report 6126267-X (Version None)
Quarter: 2009Q1

REPORT INFORMATION
  Report Type: 
  Country: None (occurrence: None)
  Receive Date: 20090320
  Receipt Date: 20090309
  Transmission Date: 20090719
  Serious: Yes (Other)
  Sender: FDA-Public Use
  Company Number: PHHY2009BR08662

PATIENT
  Sex: Female
  Weight: 84 kg

DRUGS (5)
  1. LESCOL XL [Suspect]
     Indication: BLOOD CHOLESTEROL
     Dosage: 80 MG, QD
     Route: 048
  2. TEBONIN [Concomitant]
     Indication: EAR DISORDER
     Dosage: 1DF, FOR MORE THAN 10 YEARS
     Route: 048
  3. DAFLON [Concomitant]
     Indication: VEIN DISORDER
     Dosage: 500 MG, 2 DF
     Route: 048
  4. CALTRATE [Concomitant]
     Indication: MINERAL SUPPLEMENTATION
     Dosage: 1 TABLET IN THE MORNING
     Route: 048
  5. ASCORBIC ACID [Concomitant]
     Indication: VITAMIN C
     Dosage: 1 TABLET DAILY
     Route: 048

REACTIONS (8)
  - DYSPHONIA [None]
  - FALL [None]
  - HUMERUS FRACTURE [None]
  - HYPERSENSITIVITY [None]
  - LIMB PROSTHESIS USER [None]
  - NASOPHARYNGITIS [None]
  - NERVOUS SYSTEM DISORDER [None]
  - SURGERY [None]
